FAERS Safety Report 7010873-4 (Version None)
Quarter: 2010Q3

REPORT INFORMATION
  Report Type: 
  Country: None (occurrence: None)
  Receive Date: 20100923
  Receipt Date: 20100923
  Transmission Date: 20110219
  Serious: Yes (Life-Threatening, Hospitalization, Disabling, Other)
  Sender: FDA-Public Use
  Company Number: None

PATIENT
  Age: 52 Year
  Sex: Female
  Weight: 73.2 kg

DRUGS (1)
  1. ALLI [Suspect]
     Dosage: SEE 8/31/2010 REPORT

REACTIONS (1)
  - YELLOW SKIN [None]
